FAERS Safety Report 23942289 (Version 2)
Quarter: 2024Q3

REPORT INFORMATION
  Report Type: Spontaneous
  Country: AU (occurrence: AU)
  Receive Date: 20240605
  Receipt Date: 20240812
  Transmission Date: 20241016
  Serious: Yes (Other)
  Sender: NOVARTIS
  Company Number: AU-002147023-NVSC2024AU117314

PATIENT
  Sex: Male

DRUGS (1)
  1. COSENTYX [Suspect]
     Active Substance: SECUKINUMAB
     Indication: Product used for unknown indication
     Dosage: 150 MG, OTHER (INJECT 2 PENS (300 MG) ON WEEK 0,1,2,3,4 THEN ONE PEN (150 MG) EVERY TWO WEEKS THEREA
     Route: 058

REACTIONS (3)
  - Lung neoplasm malignant [Unknown]
  - Tumour ulceration [Unknown]
  - Immunodeficiency [Unknown]
